FAERS Safety Report 24552923 (Version 1)
Quarter: 2024Q4

REPORT INFORMATION
  Report Type: Spontaneous
  Country: CA (occurrence: CA)
  Receive Date: 20241027
  Receipt Date: 20241027
  Transmission Date: 20250114
  Serious: Yes (Hospitalization, Other)
  Sender: JOHNSON AND JOHNSON
  Company Number: CA-JNJFOC-20241055206

PATIENT
  Age: 19 Year
  Sex: Female
  Weight: 62 kg

DRUGS (5)
  1. INVEGA [Suspect]
     Active Substance: PALIPERIDONE
     Indication: Product used for unknown indication
     Route: 048
  2. INFLECTRA [Suspect]
     Active Substance: INFLIXIMAB-DYYB
     Indication: Crohn^s disease
     Dosage: (600 MG, 0, 2 AND 6 THEN EVERY 8 WEEKS FOR 6 MONTHS (WEEK 0))
     Route: 041
     Dates: start: 20240822
  3. INFLECTRA [Suspect]
     Active Substance: INFLIXIMAB-DYYB
     Dosage: (600 MG, 0, 2 AND 6 THEN EVERY 8 WEEKS FOR 6 MONTHS (WEEK 0))
     Route: 041
     Dates: start: 20240830
  4. INFLECTRA [Suspect]
     Active Substance: INFLIXIMAB-DYYB
     Route: 041
     Dates: start: 20240822
  5. OLANZAPINE [Concomitant]
     Active Substance: OLANZAPINE

REACTIONS (10)
  - Hallucination, auditory [Unknown]
  - Suicidal ideation [Unknown]
  - Crohn^s disease [Unknown]
  - Off label use [Unknown]
  - Gastrointestinal mucosa hyperaemia [Not Recovered/Not Resolved]
  - Intentional product use issue [Unknown]
  - Drug ineffective [Unknown]
  - Insomnia [Unknown]
  - Fear [Unknown]
  - Psychiatric symptom [Unknown]

NARRATIVE: CASE EVENT DATE: 20240801
